FAERS Safety Report 9712852 (Version 1)
Quarter: 2013Q4

REPORT INFORMATION
  Report Type: Spontaneous
  Country: US (occurrence: US)
  Receive Date: 20131126
  Receipt Date: 20131126
  Transmission Date: 20140711
  Serious: No
  Sender: FDA-Public Use
  Company Number: US-BRISTOL-MYERS SQUIBB COMPANY-18935239

PATIENT
  Age: 58 Year
  Sex: Male
  Weight: 131.52 kg

DRUGS (5)
  1. BYDUREON 2MG SUSPENSION [Suspect]
     Indication: TYPE 2 DIABETES MELLITUS
  2. GLUMETZA [Suspect]
  3. GLIMEPIRIDE [Suspect]
  4. EXFORGE [Concomitant]
  5. CRESTOR [Concomitant]

REACTIONS (5)
  - Injection site extravasation [Unknown]
  - Injection site nodule [Unknown]
  - Injection site haemorrhage [Unknown]
  - Blood glucose increased [Unknown]
  - Weight increased [Unknown]
